FAERS Safety Report 25643991 (Version 1)
Quarter: 2025Q3

REPORT INFORMATION
  Report Type: Report from Study
  Country: EU (occurrence: EU)
  Receive Date: 20250805
  Receipt Date: 20250805
  Transmission Date: 20251021
  Serious: Yes (Other)
  Sender: RANBAXY
  Company Number: EU-SUN PHARMACEUTICAL INDUSTRIES LTD-2025RR-520663

PATIENT
  Sex: Male

DRUGS (2)
  1. PENTOXIFYLLINE [Suspect]
     Active Substance: PENTOXIFYLLINE
     Indication: Neurofibromatosis
     Route: 065
  2. IMATINIB [Suspect]
     Active Substance: IMATINIB
     Indication: Neurofibromatosis
     Route: 065

REACTIONS (1)
  - Neoplasm recurrence [Unknown]
